FAERS Safety Report 15603334 (Version 3)
Quarter: 2018Q4

REPORT INFORMATION
  Report Type: Report from Study
  Country: JP (occurrence: JP)
  Receive Date: 20181109
  Receipt Date: 20181227
  Transmission Date: 20190205
  Serious: Yes (Other)
  Sender: FDA-Public Use
  Company Number: JP-TEVA-821080ROM

PATIENT
  Age: 51 Year
  Sex: Female
  Weight: 48.9 kg

DRUGS (19)
  1. BUP-4 [Concomitant]
     Active Substance: PROPIVERINE
  2. BROTIZOLAM [Concomitant]
     Active Substance: BROTIZOLAM
     Dates: end: 20170807
  3. GLATIRAMER ACETATE. [Suspect]
     Active Substance: GLATIRAMER ACETATE
     Dosage: 20 MILLIGRAM/MILLILITERS DAILY;
     Route: 058
     Dates: start: 20180213
  4. FEXOFENADINE HYDROCHLORIDE. [Concomitant]
     Active Substance: FEXOFENADINE HYDROCHLORIDE
     Dates: start: 20170329, end: 20170510
  5. ZOLPIDEM TARTRATE. [Concomitant]
     Active Substance: ZOLPIDEM TARTRATE
     Dates: end: 20170430
  6. NEUQUINON [Concomitant]
     Active Substance: UBIDECARENONE
     Dates: end: 20170510
  7. GLATIRAMER ACETATE. [Suspect]
     Active Substance: GLATIRAMER ACETATE
     Indication: RELAPSING-REMITTING MULTIPLE SCLEROSIS
     Dosage: 20 MILLIGRAM DAILY;
     Route: 058
     Dates: start: 20170329, end: 20171214
  8. VESICARE [Concomitant]
     Active Substance: SOLIFENACIN SUCCINATE
  9. EDIROL [Concomitant]
     Active Substance: ELDECALCITOL
  10. GLATIRAMER ACETATE. [Suspect]
     Active Substance: GLATIRAMER ACETATE
     Dosage: 10 MILLIGRAM DAILY;
     Route: 058
     Dates: start: 20171215, end: 20171224
  11. MAGNESIUM OXIDE. [Concomitant]
     Active Substance: MAGNESIUM OXIDE
  12. LOXONIN [Concomitant]
     Active Substance: LOXOPROFEN SODIUM
     Route: 065
     Dates: start: 20180112, end: 20180126
  13. GLATIRAMER ACETATE. [Suspect]
     Active Substance: GLATIRAMER ACETATE
     Dosage: 13 MILLIGRAM DAILY;
     Route: 058
     Dates: start: 20171226, end: 20180105
  14. GLATIRAMER ACETATE. [Suspect]
     Active Substance: GLATIRAMER ACETATE
     Dosage: 13 MILLIGRAM DAILY;
     Route: 058
     Dates: start: 20180112, end: 20180212
  15. DEPAKENE [Concomitant]
     Active Substance: VALPROIC ACID
     Dates: start: 20170330, end: 20170510
  16. PREDONINE [Concomitant]
     Active Substance: PREDNISOLONE
  17. PREDNISOLONE. [Concomitant]
     Active Substance: PREDNISOLONE
     Route: 065
  18. GLATIRAMER ACETATE. [Suspect]
     Active Substance: GLATIRAMER ACETATE
     Dosage: 20 MILLIGRAM DAILY;
     Route: 058
     Dates: start: 20171225, end: 20171225
  19. BELSOMRA [Concomitant]
     Active Substance: SUVOREXANT
     Dates: start: 20170512, end: 20170514

REACTIONS (9)
  - Infection [Recovered/Resolved]
  - Chills [Recovered/Resolved]
  - Product prescribing error [Unknown]
  - Eczema [Recovered/Resolved]
  - Injection site pruritus [Recovered/Resolved]
  - Prescribed underdose [Unknown]
  - Multiple sclerosis [Recovering/Resolving]
  - Injection site pain [Recovered/Resolved]
  - Rash [Recovering/Resolving]

NARRATIVE: CASE EVENT DATE: 20170329
